FAERS Safety Report 19546135 (Version 6)
Quarter: 2021Q4

REPORT INFORMATION
  Report Type: Spontaneous
  Country: US (occurrence: US)
  Receive Date: 20210714
  Receipt Date: 20211011
  Transmission Date: 20220304
  Serious: No
  Sender: FDA-Public Use
  Company Number: US-BIOVITRUM-2021US6827

PATIENT
  Sex: Female

DRUGS (2)
  1. DOPTELET [Suspect]
     Active Substance: AVATROMBOPAG MALEATE
     Indication: Thrombocytopenia
     Route: 048
     Dates: start: 20210630, end: 20210908
  2. DOPTELET [Suspect]
     Active Substance: AVATROMBOPAG MALEATE
     Dosage: MONDAY AND FRIDAY OF EACH WEEK
     Route: 048

REACTIONS (4)
  - Platelet count increased [Unknown]
  - Fatigue [Unknown]
  - Headache [Recovered/Resolved]
  - Drug ineffective [Unknown]
